FAERS Safety Report 10949475 (Version 2)
Quarter: 2015Q2

REPORT INFORMATION
  Report Type: Spontaneous
  Country: IT (occurrence: IT)
  Receive Date: 20150324
  Receipt Date: 20150421
  Transmission Date: 20150821
  Serious: Yes (Other)
  Sender: FDA-Public Use
  Company Number: IT-PFIZER INC-2015035765

PATIENT
  Age: 70 Year
  Sex: Male

DRUGS (4)
  1. TALOFEN [Concomitant]
     Active Substance: PROMAZINE HYDROCHLORIDE
     Dosage: UNK
     Route: 048
  2. ENALAPRIL MALEATE. [Concomitant]
     Active Substance: ENALAPRIL MALEATE
     Dosage: UNK
  3. TICLOPIDINE HYDROCHLORIDE. [Interacting]
     Active Substance: TICLOPIDINE HYDROCHLORIDE
     Dosage: UNK
     Dates: start: 20131112, end: 20141112
  4. SERTRALINE HCL [Suspect]
     Active Substance: SERTRALINE HYDROCHLORIDE
     Dosage: UNK

REACTIONS (3)
  - Drug interaction [Recovering/Resolving]
  - Haematuria [Recovering/Resolving]
  - Asthenia [Recovering/Resolving]

NARRATIVE: CASE EVENT DATE: 20141109
